FAERS Safety Report 7099296-X (Version None)
Quarter: 2010Q4

REPORT INFORMATION
  Report Type: 
  Country: None (occurrence: None)
  Receive Date: 20101112
  Receipt Date: 20101105
  Transmission Date: 20110411
  Serious: Yes (Hospitalization)
  Sender: FDA-Public Use
  Company Number: PHHY2010US72806

PATIENT
  Sex: Male
  Weight: 106.41 kg

DRUGS (10)
  1. EXJADE [Suspect]
     Indication: IRON METABOLISM DISORDER
     Dosage: 1000MG DAILY
     Route: 048
     Dates: start: 20100615
  2. CALCITRIOL [Concomitant]
  3. LISINOPRIL AND HYDROCHLOROTHIAZIDE [Concomitant]
  4. VITAMIN B-12 [Concomitant]
  5. FOLIC ACID [Concomitant]
  6. HYDROXYZINE [Concomitant]
  7. OMEPRAZOLE [Concomitant]
  8. KETOCONAZOLE [Concomitant]
     Dosage: UNK
     Dates: start: 20100615
  9. CALCIUM [Concomitant]
  10. FUROSEMIDE [Concomitant]

REACTIONS (3)
  - HAEMOGLOBIN DECREASED [None]
  - RASH [None]
  - TREATMENT NONCOMPLIANCE [None]
